FAERS Safety Report 18180583 (Version 1)
Quarter: 2020Q3

REPORT INFORMATION
  Report Type: Spontaneous
  Country: US (occurrence: US)
  Receive Date: 20200821
  Receipt Date: 20200821
  Transmission Date: 20201103
  Serious: No
  Sender: FDA-Public Use
  Company Number: US-009507513-2008USA009784

PATIENT
  Age: 39 Year
  Sex: Female

DRUGS (4)
  1. FOLLISTIM AQ [Suspect]
     Active Substance: FOLLITROPIN
     Dosage: AS DIRECTED, 10 TO 16 D (STRENGTH 900IU/1.08ML)
     Route: 058
     Dates: start: 20200808
  2. FOLLISTIM AQ [Suspect]
     Active Substance: FOLLITROPIN
  3. GONADOTROPIN, CHORIONIC [Concomitant]
     Active Substance: CHORIOGONADOTROPIN ALFA
     Dosage: HCG 100000
  4. CEPHALEXIN. [Concomitant]
     Active Substance: CEPHALEXIN
     Dosage: UNK

REACTIONS (4)
  - Injection site pain [Unknown]
  - Product dose omission issue [Unknown]
  - Incorrect product administration duration [Unknown]
  - Injection site swelling [Unknown]

NARRATIVE: CASE EVENT DATE: 202008
